FAERS Safety Report 4350607-5 (Version None)
Quarter: 2004Q2

REPORT INFORMATION
  Report Type: 
  Country: None (occurrence: None)
  Receive Date: 20040427
  Receipt Date: 20040413
  Transmission Date: 20050107
  Serious: Yes (Hospitalization)
  Sender: FDA-Public Use
  Company Number: RENA-10990

PATIENT
  Age: 46 Year
  Sex: Female

DRUGS (5)
  1. PHOSBLOCK - 250 MG TABLET [Suspect]
     Indication: HYPERPHOSPHATAEMIA
     Dosage: 6 G QD PO
     Route: 048
     Dates: start: 20030910
  2. PRAVASTATIN [Concomitant]
  3. BROTIZOLAM [Concomitant]
  4. METOPROLOL TARTRATE [Concomitant]
  5. SENNOSIDE [Concomitant]

REACTIONS (1)
  - ANGINA PECTORIS [None]
